FAERS Safety Report 9998280 (Version 1)
Quarter: 2014Q1

REPORT INFORMATION
  Report Type: Spontaneous
  Country: US (occurrence: US)
  Receive Date: 20140312
  Receipt Date: 20140312
  Transmission Date: 20141002
  Serious: Yes (Hospitalization, Other)
  Sender: FDA-Public Use
  Company Number: US-AMGEN-USASP2014015765

PATIENT
  Age: 30 Year
  Sex: Female

DRUGS (1)
  1. ENBREL [Suspect]
     Indication: PSORIASIS
     Dosage: 50 MG, QWK
     Route: 065
     Dates: start: 2000

REACTIONS (5)
  - Blood pressure increased [Recovered/Resolved]
  - Pre-eclampsia [Recovered/Resolved]
  - Psoriasis [Not Recovered/Not Resolved]
  - Prehypertension [Recovered/Resolved]
  - Swelling [Recovered/Resolved]
